FAERS Safety Report 6633558-2 (Version None)
Quarter: 2010Q1

REPORT INFORMATION
  Report Type: 
  Country: None (occurrence: None)
  Receive Date: 20100312
  Receipt Date: 20100218
  Transmission Date: 20100710
  Serious: No
  Sender: FDA-Public Use
  Company Number: US-ABBOTT-10P-163-0627282-00

PATIENT
  Sex: Female

DRUGS (7)
  1. ERYTHROMYCIN [Suspect]
     Indication: DRUG USE FOR UNKNOWN INDICATION
  2. SIMCOR [Concomitant]
     Indication: LOW DENSITY LIPOPROTEIN INCREASED
     Dosage: 500/20MG QHS
     Dates: start: 20100209
  3. SIMCOR [Concomitant]
     Indication: BLOOD TRIGLYCERIDES INCREASED
  4. SIMCOR [Concomitant]
     Indication: HIGH DENSITY LIPOPROTEIN DECREASED
  5. BABY ASPIRIN [Concomitant]
     Indication: DRUG USE FOR UNKNOWN INDICATION
  6. AMLODIPINE [Concomitant]
     Indication: DRUG USE FOR UNKNOWN INDICATION
  7. BENAZEPRIL HYDROCHLORIDE [Concomitant]
     Indication: DRUG USE FOR UNKNOWN INDICATION

REACTIONS (1)
  - RASH PAPULAR [None]
